FAERS Safety Report 9789691 (Version 2)
Quarter: 2014Q1

REPORT INFORMATION
  Report Type: Spontaneous
  Country: AU (occurrence: None)
  Receive Date: 20131227
  Receipt Date: 20140203
  Transmission Date: 20141002
  Serious: Yes (Hospitalization)
  Sender: FDA-Public Use
  Company Number: 2013AP010753

PATIENT
  Age: 73 Year
  Sex: Male

DRUGS (4)
  1. SOTALOL [Suspect]
     Indication: ATRIAL FLUTTER
     Route: 048
  2. GLICLAZIDE (GLICLAZIDE) [Concomitant]
  3. METFORMIN (METFORMIN) [Concomitant]
  4. WARFARIN (WARFARIN) [Concomitant]

REACTIONS (1)
  - Cardiogenic shock [None]
